FAERS Safety Report 16302262 (Version 1)
Quarter: 2019Q2

REPORT INFORMATION
  Report Type: Spontaneous
  Country: None (occurrence: US)
  Receive Date: 20190512
  Receipt Date: 20190512
  Transmission Date: 20190711
  Serious: Yes (Death, Hospitalization, Other)
  Sender: FDA-Public Use
  Company Number: US-JIANGSU HENGRUI MEDICINE CO., LTD.-2066911

PATIENT
  Age: 9 Year
  Sex: Female
  Weight: 41 kg

DRUGS (9)
  1. VINCRISTINE [Concomitant]
     Active Substance: VINCRISTINE
  2. CYTARABINE. [Concomitant]
     Active Substance: CYTARABINE
     Route: 024
  3. ETOPOSIDE. [Concomitant]
     Active Substance: ETOPOSIDE
     Route: 042
  4. DEXAMETHASONE. [Concomitant]
     Active Substance: DEXAMETHASONE
  5. TISAGENLECLEUCEL-T [Concomitant]
     Active Substance: TISAGENLECLEUCEL
  6. HYDROCORTISONE. [Concomitant]
     Active Substance: HYDROCORTISONE
     Route: 024
  7. MERCAPTOPURINE. [Suspect]
     Active Substance: MERCAPTOPURINE
  8. CYCLOPHOSPHAMIDE FOR INJECTION USP, 500 MG, 1 G AND 2 G PER SINGLE-DOS [Suspect]
     Active Substance: CYCLOPHOSPHAMIDE
     Indication: ACUTE LYMPHOCYTIC LEUKAEMIA
     Route: 042
  9. METHOTREXATE. [Concomitant]
     Active Substance: METHOTREXATE
     Route: 024

REACTIONS (3)
  - Diplegia [Not Recovered/Not Resolved]
  - Cytokine release syndrome [Fatal]
  - Neoplasm progression [None]

NARRATIVE: CASE EVENT DATE: 20181208
